FAERS Safety Report 10063763 (Version 2)
Quarter: 2014Q2

REPORT INFORMATION
  Report Type: Spontaneous
  Country: DE (occurrence: DE)
  Receive Date: 20140408
  Receipt Date: 20140421
  Transmission Date: 20141212
  Serious: Yes (Other)
  Sender: FDA-Public Use
  Company Number: DE-AMGEN-DEUSP2014023369

PATIENT
  Age: 72 Year
  Sex: Male

DRUGS (12)
  1. MIMPARA [Suspect]
     Indication: HYPERPARATHYROIDISM SECONDARY
     Dosage: 30 MG, QD
     Route: 048
     Dates: start: 20131108, end: 20140317
  2. ARANESP [Concomitant]
     Dosage: 40 MUG, Q2WK
  3. CALCIUM [Concomitant]
     Dosage: 500 MG, UNK
     Dates: start: 20140213
  4. VIGANTOLETTEN [Concomitant]
     Dosage: 1000 IU, QD
     Dates: start: 20131007, end: 20140317
  5. RENAGEL                            /01459901/ [Concomitant]
     Dosage: 2 DF, TID
     Dates: start: 20131007, end: 20140317
  6. BONDIOL [Concomitant]
     Dosage: 0.25 MUG, UNK
     Dates: start: 20131007, end: 20140317
  7. DECORTIN [Concomitant]
     Dosage: 5 MG, UNK
  8. ENALAPRIL [Concomitant]
  9. ASS [Concomitant]
  10. BELOC-ZOC COMP [Concomitant]
  11. DREISAVIT                          /00844801/ [Concomitant]
  12. PANTOZOL                           /01263204/ [Concomitant]

REACTIONS (6)
  - Tetany [Recovered/Resolved]
  - Infection [Recovered/Resolved]
  - Sinusitis [Recovered/Resolved]
  - Nausea [Recovered/Resolved]
  - Vomiting [Recovered/Resolved]
  - Hypocalcaemia [Recovered/Resolved]
